FAERS Safety Report 8085107-2 (Version None)
Quarter: 2012Q1

REPORT INFORMATION
  Report Type: 
  Country: None (occurrence: None)
  Receive Date: 20120128
  Receipt Date: 20110329
  Transmission Date: 20120608
  Serious: No
  Sender: FDA-Public Use
  Company Number: US-ABBOTT-11P-163-0715527-00

PATIENT
  Sex: Male
  Weight: 99.88 kg

DRUGS (5)
  1. COUMADIN [Concomitant]
     Indication: ILL-DEFINED DISORDER
     Dates: start: 19910101
  2. FOLIC ACID [Concomitant]
     Indication: PRODUCT USED FOR UNKNOWN INDICATION
  3. ATENOLOL [Concomitant]
     Indication: HYPERTENSION
  4. HUMIRA [Suspect]
     Indication: PSORIASIS
     Dosage: ON HOLD
     Dates: start: 20101101
  5. BENAZEPRIL HYDROCHLORIDE [Concomitant]
     Indication: HYPERTENSION

REACTIONS (2)
  - BACK PAIN [None]
  - PLATELET COUNT DECREASED [None]
